FAERS Safety Report 14313483 (Version 1)
Quarter: 2017Q4

REPORT INFORMATION
  Report Type: Spontaneous
  Country: US (occurrence: US)
  Receive Date: 20171221
  Receipt Date: 20171221
  Transmission Date: 20180321
  Serious: No
  Sender: FDA-Public Use
  Company Number: US-GLAXOSMITHKLINE-US2017196949

PATIENT
  Age: 55 Year
  Sex: Male

DRUGS (9)
  1. TANZEUM [Suspect]
     Active Substance: ALBIGLUTIDE
     Indication: TYPE 1 DIABETES MELLITUS
     Dosage: 50 MG, WE
     Route: 058
  2. TANZEUM [Suspect]
     Active Substance: ALBIGLUTIDE
     Dosage: UNK
  3. AMLODIPINE [Concomitant]
     Active Substance: AMLODIPINE BESYLATE
  4. XARELTO [Concomitant]
     Active Substance: RIVAROXABAN
  5. LEVOTHYROXINE. [Concomitant]
     Active Substance: LEVOTHYROXINE
  6. PREVACID [Concomitant]
     Active Substance: LANSOPRAZOLE
  7. AMIODARONE [Concomitant]
     Active Substance: AMIODARONE
  8. ATORVASTATIN [Concomitant]
     Active Substance: ATORVASTATIN
  9. LISINOPRIL. [Concomitant]
     Active Substance: LISINOPRIL

REACTIONS (2)
  - Expired product administered [Unknown]
  - Product used for unknown indication [Unknown]

NARRATIVE: CASE EVENT DATE: 20171219
